FAERS Safety Report 6634432-8 (Version None)
Quarter: 2010Q1

REPORT INFORMATION
  Report Type: 
  Country: None (occurrence: None)
  Receive Date: 20100315
  Receipt Date: 20100224
  Transmission Date: 20100710
  Serious: Yes (Hospitalization, Other)
  Sender: FDA-Public Use
  Company Number: US-PERRIGO-10US007265

PATIENT
  Sex: Female
  Weight: 79.365 kg

DRUGS (2)
  1. CETIRIZINE 10MG 4H2 [Suspect]
     Indication: NASOPHARYNGITIS
     Dosage: 10 MG, SINGLE
     Route: 048
     Dates: start: 20100219, end: 20100219
  2. CETIRIZINE 10MG 4H2 [Suspect]
     Indication: HYPERSENSITIVITY

REACTIONS (8)
  - AURICULAR SWELLING [None]
  - ERYTHEMA [None]
  - FEELING ABNORMAL [None]
  - FEELING HOT [None]
  - PERIPHERAL COLDNESS [None]
  - PHARYNGEAL OEDEMA [None]
  - PRURITUS GENERALISED [None]
  - SHOCK [None]
